FAERS Safety Report 7207716-2 (Version None)
Quarter: 2011Q1

REPORT INFORMATION
  Report Type: 
  Country: None (occurrence: None)
  Receive Date: 20110103
  Receipt Date: 20101229
  Transmission Date: 20110831
  Serious: No
  Sender: FDA-Public Use
  Company Number: US-JNJFOC-20101209245

PATIENT
  Sex: Female
  Weight: 66.68 kg

DRUGS (5)
  1. FENTANYL-100 [Suspect]
     Indication: PAIN IN EXTREMITY
     Route: 062
  2. HYDROCODONE [Concomitant]
     Indication: PAIN
     Route: 048
  3. NEURONTIN [Suspect]
     Indication: NEUROPATHY PERIPHERAL
     Route: 048
  4. LISINOPRIL [Concomitant]
     Indication: BLOOD PRESSURE
     Route: 048
  5. FENTANYL-100 [Suspect]
     Route: 062

REACTIONS (7)
  - ACNE [None]
  - APPLICATION SITE PRURITUS [None]
  - APPLICATION SITE ERYTHEMA [None]
  - WRONG TECHNIQUE IN DRUG USAGE PROCESS [None]
  - PRURITUS [None]
  - FEELING COLD [None]
  - APPLICATION SITE URTICARIA [None]
